FAERS Safety Report 10388277 (Version 1)
Quarter: 2014Q3

REPORT INFORMATION
  Report Type: Report from Study
  Country: US (occurrence: US)
  Receive Date: 20140815
  Receipt Date: 20140815
  Transmission Date: 20150326
  Serious: Yes (Hospitalization, Other)
  Sender: FDA-Public Use
  Company Number: US-TEVA-501401USA

PATIENT
  Age: 40 Year
  Sex: Female

DRUGS (2)
  1. COPAXONE [Suspect]
     Active Substance: GLATIRAMER ACETATE
     Indication: MULTIPLE SCLEROSIS
     Dates: start: 20140722, end: 20140801
  2. COPAXONE [Suspect]
     Active Substance: GLATIRAMER ACETATE
     Dates: start: 20120723, end: 201407

REACTIONS (4)
  - Unresponsive to stimuli [Recovered/Resolved]
  - Respiratory rate decreased [Recovered/Resolved]
  - Body temperature decreased [Recovered/Resolved]
  - Coma [Recovered/Resolved]

NARRATIVE: CASE EVENT DATE: 20140801
